FAERS Safety Report 5892171-5 (Version None)
Quarter: 2008Q3

REPORT INFORMATION
  Report Type: 
  Country: None (occurrence: None)
  Receive Date: 20080908
  Receipt Date: 20080624
  Transmission Date: 20090109
  Serious: No
  Sender: FDA-Public Use
  Company Number: 002#2#2008-00484

PATIENT
  Age: 72 Year
  Sex: Female
  Weight: 63.5036 kg

DRUGS (7)
  1. NEUPRO [Suspect]
     Indication: PARKINSON'S DISEASE
     Dosage: MG/24H, 1 IN 1, TRANSDERMAL
     Route: 062
     Dates: start: 20070831
  2. MIRAPEX [Concomitant]
  3. ARICEPT [Concomitant]
  4. PROTONIX [Concomitant]
  5. ZETIA [Concomitant]
  6. LORAZEPAM [Concomitant]
  7. HYOSCYAMINE [Concomitant]

REACTIONS (1)
  - AMNESIA [None]
